FAERS Safety Report 9489964 (Version 1)
Quarter: 2013Q3

REPORT INFORMATION
  Report Type: Spontaneous
  Country: US (occurrence: US)
  Receive Date: 20130829
  Receipt Date: 20130829
  Transmission Date: 20140515
  Serious: No
  Sender: FDA-Public Use
  Company Number: US-TEVA-429419USA

PATIENT
  Age: 24 Year
  Sex: Female
  Weight: 59.02 kg

DRUGS (6)
  1. PLAN B ONE-STEP [Suspect]
     Indication: POST COITAL CONTRACEPTION
     Dosage: 1.5 MILLIGRAM DAILY;
     Route: 048
     Dates: start: 20130820, end: 20130820
  2. PLAN B ONE-STEP [Suspect]
     Dosage: 1.5 MILLIGRAM DAILY;
     Route: 048
     Dates: start: 20130824, end: 20130824
  3. NEXT CHOICE [Suspect]
     Indication: POST COITAL CONTRACEPTION
     Dates: start: 20130802, end: 20130802
  4. MULTIVITAMINS [Concomitant]
     Indication: SUPPLEMENTATION THERAPY
  5. BUPROPION [Concomitant]
     Indication: DEPRESSION
  6. CALCIUM [Concomitant]
     Indication: SUPPLEMENTATION THERAPY

REACTIONS (1)
  - Menstruation irregular [Not Recovered/Not Resolved]
